FAERS Safety Report 12360765 (Version 1)
Quarter: 2016Q2

REPORT INFORMATION
  Report Type: Spontaneous
  Country: US (occurrence: US)
  Receive Date: 20160512
  Receipt Date: 20160512
  Transmission Date: 20160815
  Serious: Yes (Other)
  Sender: FDA-Public Use
  Company Number: US-SAGENTPRD-2016-US-000008

PATIENT
  Age: 54 Year
  Sex: Male
  Weight: 123.7 kg

DRUGS (12)
  1. MILRINONE [Concomitant]
     Active Substance: MILRINONE
     Dates: start: 20160428, end: 20160428
  2. EPINEPHRINE. [Concomitant]
     Active Substance: EPINEPHRINE
     Dates: start: 20160428, end: 20160428
  3. NITROGLYCERIN. [Concomitant]
     Active Substance: NITROGLYCERIN
     Dates: start: 20160428, end: 20160428
  4. AMINOCAPROIC ACID. [Concomitant]
     Active Substance: AMINOCAPROIC ACID
     Dates: start: 20160428, end: 20160428
  5. PROPOFOL. [Concomitant]
     Active Substance: PROPOFOL
     Dates: start: 20160428, end: 20160428
  6. FENTANYL. [Concomitant]
     Active Substance: FENTANYL
     Dates: start: 20160428, end: 20160428
  7. SUCCINYLCHOLINE [Concomitant]
     Active Substance: SUCCINYLCHOLINE
     Dates: start: 20160428, end: 20160428
  8. INSULIN (REGULAR) [Concomitant]
     Dates: start: 20160428, end: 20160428
  9. PROTAMINE [Concomitant]
     Active Substance: PROTAMINE
     Dates: start: 20160428, end: 20160428
  10. MIDAZOLAM [Concomitant]
     Active Substance: MIDAZOLAM\MIDAZOLAM HYDROCHLORIDE
     Dates: start: 20160428, end: 20160428
  11. HEPARIN SODIUM INJECTION, MDV, 30 ML, 1000 U/ML [Suspect]
     Active Substance: HEPARIN SODIUM
     Dosage: 76,000 U TOTAL DOSE
     Route: 042
     Dates: start: 20160428, end: 20160428
  12. VECURONIUM [Concomitant]
     Active Substance: VECURONIUM BROMIDE
     Dates: start: 20160428, end: 20160428

REACTIONS (1)
  - Drug ineffective [Unknown]

NARRATIVE: CASE EVENT DATE: 20160428
